FAERS Safety Report 18534702 (Version 3)
Quarter: 2021Q1

REPORT INFORMATION
  Report Type: Spontaneous
  Country: US (occurrence: US)
  Receive Date: 20201123
  Receipt Date: 20210107
  Transmission Date: 20210419
  Serious: Yes (Other)
  Sender: FDA-Public Use
  Company Number: US-WEST THERAPEUTIC DEVELOPMENT-2020WTD03127

PATIENT
  Age: 55 Year
  Sex: Male

DRUGS (5)
  1. EPI [Concomitant]
     Active Substance: EPINEPHRINE
     Dosage: UNK, AS NEEDED
  2. NARCAN [Concomitant]
     Active Substance: NALOXONE HYDROCHLORIDE
  3. NOVOLOG [Concomitant]
     Active Substance: INSULIN ASPART
  4. SUBSYS [Suspect]
     Active Substance: FENTANYL
     Indication: PAIN
     Dosage: 400 ?G, UP TO 3X/DAY AS NEEDED
     Route: 060
     Dates: start: 2014, end: 2020
  5. OZEMPIC [Concomitant]
     Active Substance: SEMAGLUTIDE

REACTIONS (9)
  - Cold sweat [Recovering/Resolving]
  - Malaise [Recovering/Resolving]
  - Musculoskeletal discomfort [Recovering/Resolving]
  - Vomiting [Recovered/Resolved]
  - Off label use [Not Recovered/Not Resolved]
  - Feeling hot [Recovering/Resolving]
  - Fall [Unknown]
  - Meniscus injury [Recovering/Resolving]
  - Pain [Recovering/Resolving]

NARRATIVE: CASE EVENT DATE: 2016
